FAERS Safety Report 7204707-2 (Version None)
Quarter: 2010Q4

REPORT INFORMATION
  Report Type: 
  Country: None (occurrence: None)
  Receive Date: 20101230
  Receipt Date: 20101222
  Transmission Date: 20110411
  Serious: Yes (Other)
  Sender: FDA-Public Use
  Company Number: DE-AMGEN-DEUSP2010010715

PATIENT

DRUGS (1)
  1. NEUPOGEN [Suspect]
     Indication: CYCLIC NEUTROPENIA
     Dosage: UNK

REACTIONS (1)
  - POLYNEUROPATHY [None]
